FAERS Safety Report 15783563 (Version 1)
Quarter: 2019Q1

REPORT INFORMATION
  Report Type: Spontaneous
  Country: NL (occurrence: NL)
  Receive Date: 20190102
  Receipt Date: 20190102
  Transmission Date: 20190417
  Serious: Yes (Hospitalization)
  Sender: FDA-Public Use
  Company Number: NL-PFIZER INC-2018440858

PATIENT
  Age: 73 Year
  Sex: Female

DRUGS (23)
  1. FESOTERODINE [Concomitant]
     Active Substance: FESOTERODINE
     Dosage: 8 MG, 1X/DAY
     Route: 048
  2. INSULINE GLARGINE [Concomitant]
     Active Substance: INSULIN GLARGINE
     Dosage: UNK
  3. KETOCONAZOL [Concomitant]
     Active Substance: KETOCONAZOLE
     Dosage: UNK UNK, 2X/DAY
  4. PASIREOTIDE. [Concomitant]
     Active Substance: PASIREOTIDE
     Dosage: 1 DF, EVERY FOUR WEEKS
  5. SOMAVERT [Suspect]
     Active Substance: PEGVISOMANT
     Indication: ACROMEGALY
     Dosage: UNK
     Dates: start: 20130425
  6. COLECALCIFEROL [Concomitant]
     Active Substance: CHOLECALCIFEROL
     Dosage: 800 IU, 1X/DAY
     Route: 048
  7. FERROFUMARAAT [Concomitant]
     Dosage: 200 MG, 3X/DAY
     Route: 048
  8. FOSINOPRIL [Concomitant]
     Active Substance: FOSINOPRIL
     Dosage: 20 MG, 2X/DAY
     Route: 048
  9. GLICLAZIDE [Concomitant]
     Active Substance: GLICLAZIDE
     Dosage: 80 MG, 3X/DAY
     Route: 048
  10. HYDROCORTISON [HYDROCORTISONE] [Concomitant]
     Dosage: UNK
  11. INSULINE ASPARTATE [Concomitant]
     Dosage: UNK
  12. AMLODIPINE [Concomitant]
     Active Substance: AMLODIPINE BESYLATE
     Dosage: 5 MG, 1X/DAY
     Route: 048
  13. SOMAVERT [Suspect]
     Active Substance: PEGVISOMANT
     Dosage: 40 MG, 1X/DAY
     Route: 058
     Dates: start: 20141210
  14. BISOPROLOL [Concomitant]
     Active Substance: BISOPROLOL
     Dosage: 2.5 MG, 1X/DAY
     Route: 048
  15. BUMETANIDE. [Concomitant]
     Active Substance: BUMETANIDE
     Dosage: 1 MG, 1X/DAY
     Route: 048
  16. ISOPHANE INSULIN [Concomitant]
     Active Substance: INSULIN NOS
     Dosage: UNK
  17. ACENOCOUMAROL [Concomitant]
     Active Substance: ACENOCOUMAROL
     Dosage: UNK
     Route: 048
  18. BIMATOPROST. [Concomitant]
     Active Substance: BIMATOPROST
     Dosage: 1 DF, 1X/DAY
     Route: 047
  19. HYDROCORTISON [HYDROCORTISONE] [Concomitant]
     Dosage: 20 MG, 2X/DAY
     Route: 048
  20. LEVOTHYROXINE SODIUM. [Concomitant]
     Active Substance: LEVOTHYROXINE SODIUM
     Dosage: 50 UG, 1X/DAY
     Route: 048
  21. OMEPRAZOL [Concomitant]
     Active Substance: OMEPRAZOLE
     Dosage: 20 MG, 1X/DAY
     Route: 048
  22. HYDROCORTISON [HYDROCORTISONE] [Concomitant]
     Dosage: UNK
     Route: 048
  23. QUINAGOLIDE [Concomitant]
     Active Substance: QUINAGOLIDE
     Dosage: 75 UG, 3X/DAY
     Route: 048

REACTIONS (2)
  - Product use issue [Unknown]
  - Dyspnoea [Recovering/Resolving]

NARRATIVE: CASE EVENT DATE: 20141210
